FAERS Safety Report 4422242-1 (Version None)
Quarter: 2004Q3

REPORT INFORMATION
  Report Type: 
  Country: None (occurrence: None)
  Receive Date: 20040712
  Receipt Date: 20040213
  Transmission Date: 20050211
  Serious: No
  Sender: FDA-Public Use
  Company Number: TAP2004Q00200

PATIENT
  Age: 75 Year
  Sex: Female

DRUGS (2)
  1. PREVACID [Suspect]
     Indication: GASTROOESOPHAGEAL REFLUX DISEASE
     Dates: start: 20020101
  2. MULTIPLE UNSPECIFIED MEDICATIONS [Concomitant]

REACTIONS (1)
  - RESPIRATORY DISTRESS [None]
